FAERS Safety Report 23558465 (Version 1)
Quarter: 2024Q1

REPORT INFORMATION
  Report Type: Report from Study
  Country: CN (occurrence: CN)
  Receive Date: 20240223
  Receipt Date: 20240223
  Transmission Date: 20240410
  Serious: Yes (Hospitalization)
  Sender: FDA-Public Use
  Company Number: CN-SUN PHARMACEUTICAL INDUSTRIES LTD-2024R1-432521

PATIENT
  Age: 71 Year
  Sex: Male
  Weight: 51 kg

DRUGS (3)
  1. CAPECITABINE [Suspect]
     Active Substance: CAPECITABINE
     Indication: Gastric cancer
     Dosage: 1000 MILLIGRAM BID
     Route: 048
     Dates: start: 20230623, end: 20230913
  2. OXALIPLATIN [Suspect]
     Active Substance: OXALIPLATIN
     Indication: Adenocarcinoma gastric
     Dosage: 130 MILLIGRAM/SQ. METER Q3WK
     Route: 042
     Dates: start: 20230630, end: 20230913
  3. ZANIDATAMAB [Suspect]
     Active Substance: ZANIDATAMAB
     Indication: Adenocarcinoma gastric
     Dosage: 1800 MG/Q3W
     Route: 042
     Dates: start: 20230630, end: 20230913

REACTIONS (1)
  - Platelet count decreased [Recovered/Resolved]
